FAERS Safety Report 5714244-X (Version None)
Quarter: 2008Q2

REPORT INFORMATION
  Report Type: 
  Country: None (occurrence: None)
  Receive Date: 20080422
  Receipt Date: 20080422
  Transmission Date: 20081010
  Serious: No
  Sender: FDA-Public Use
  Company Number: None

PATIENT

DRUGS (1)
  1. FENTANYL-100 [Suspect]
     Dosage: TRANSDERMAL
     Route: 062

REACTIONS (1)
  - PHARMACEUTICAL PRODUCT COMPLAINT [None]
